FAERS Safety Report 22395596 (Version 2)
Quarter: 2023Q2

REPORT INFORMATION
  Report Type: Spontaneous
  Country: US (occurrence: US)
  Receive Date: 20230601
  Receipt Date: 20230612
  Transmission Date: 20230722
  Serious: Yes (Hospitalization)
  Sender: FDA-Public Use
  Company Number: US-TEVA-2023-US-2891128

PATIENT
  Age: 72 Year
  Sex: Male

DRUGS (3)
  1. CISPLATIN [Suspect]
     Active Substance: CISPLATIN
     Indication: Squamous cell carcinoma of head and neck
     Route: 065
  2. SALINE [Suspect]
     Active Substance: SODIUM CHLORIDE
     Indication: Renal disorder prophylaxis
     Dosage: ISOTONIC, ROUTE: {INFUSION}
     Route: 050
  3. CETUXIMAB [Concomitant]
     Active Substance: CETUXIMAB
     Indication: Squamous cell carcinoma of head and neck
     Route: 065

REACTIONS (2)
  - Renal salt-wasting syndrome [Unknown]
  - Drug ineffective [Unknown]
